FAERS Safety Report 6388913-5 (Version None)
Quarter: 2009Q4

REPORT INFORMATION
  Report Type: 
  Country: None (occurrence: None)
  Receive Date: 20091001
  Receipt Date: 20090922
  Transmission Date: 20100525
  Serious: Yes (Hospitalization)
  Sender: FDA-Public Use
  Company Number: ADR29912009

PATIENT
  Age: 79 Year
  Sex: Male

DRUGS (4)
  1. RAMIPRIL [Suspect]
  2. BISOPROLOL (5 MG) [Concomitant]
  3. CREST (10MG) [Concomitant]
  4. FUROSEMIDE (60 MG) [Concomitant]

REACTIONS (3)
  - DIZZINESS [None]
  - FEELING ABNORMAL [None]
  - ORTHOSTATIC HYPOTENSION [None]
